FAERS Safety Report 7509357-6 (Version None)
Quarter: 2011Q2

REPORT INFORMATION
  Report Type: 
  Country: None (occurrence: None)
  Receive Date: 20110527
  Receipt Date: 20110520
  Transmission Date: 20111010
  Serious: Yes (Hospitalization)
  Sender: FDA-Public Use
  Company Number: PHHO2011DE08213

PATIENT
  Sex: Female
  Weight: 77 kg

DRUGS (5)
  1. MYFORTIC [Suspect]
     Indication: RENAL TRANSPLANT
     Dosage: 1440 MG, BID
     Route: 048
     Dates: start: 20100210, end: 20100519
  2. URBASON                                 /GFR/ [Concomitant]
  3. NO TREATMENT RECEIVED [Suspect]
  4. NEORAL [Suspect]
     Dosage: 75 MG, UNK
     Route: 048
     Dates: start: 20100527
  5. NEORAL [Suspect]
     Indication: RENAL TRANSPLANT
     Dosage: 625 MG, UNK
     Route: 048
     Dates: start: 20100210, end: 20100210

REACTIONS (2)
  - TACHYARRHYTHMIA [None]
  - ATRIAL FIBRILLATION [None]
